FAERS Safety Report 6504188-8 (Version None)
Quarter: 2009Q4

REPORT INFORMATION
  Report Type: 
  Country: None (occurrence: None)
  Receive Date: 20091215
  Receipt Date: 20091204
  Transmission Date: 20100525
  Serious: Yes (Hospitalization)
  Sender: FDA-Public Use
  Company Number: 2009AP004974

PATIENT
  Age: 31 Year
  Sex: Female

DRUGS (8)
  1. CARBAMAZEPINE [Suspect]
     Dosage: 300 MG;TAB;PO;QD, 600 MG;TAB;PO;QD, 750 MG;TAB;PO;QD, 600 MG;TAB;PO;QD
     Route: 048
     Dates: start: 20090806, end: 20090807
  2. CARBAMAZEPINE [Suspect]
     Dosage: 300 MG;TAB;PO;QD, 600 MG;TAB;PO;QD, 750 MG;TAB;PO;QD, 600 MG;TAB;PO;QD
     Route: 048
     Dates: start: 20090808, end: 20090826
  3. CARBAMAZEPINE [Suspect]
     Dosage: 300 MG;TAB;PO;QD, 600 MG;TAB;PO;QD, 750 MG;TAB;PO;QD, 600 MG;TAB;PO;QD
     Route: 048
     Dates: start: 20090827, end: 20090827
  4. CARBAMAZEPINE [Suspect]
     Dosage: 300 MG;TAB;PO;QD, 600 MG;TAB;PO;QD, 750 MG;TAB;PO;QD, 600 MG;TAB;PO;QD
     Route: 048
     Dates: start: 20090828, end: 20090830
  5. CARBAMAZEPINE [Suspect]
     Dosage: 300 MG;TAB;PO;QD, 600 MG;TAB;PO;QD, 750 MG;TAB;PO;QD, 600 MG;TAB;PO;QD
     Route: 048
  6. DIAZEPAM [Concomitant]
  7. PIPAMPERONE (PIPAMPERONE) [Concomitant]
  8. PHENPROCOUMON (PHENPROCOUMON) [Concomitant]

REACTIONS (1)
  - DERMATITIS ALLERGIC [None]
